FAERS Safety Report 10563662 (Version 6)
Quarter: 2016Q1

REPORT INFORMATION
  Report Type: Spontaneous
  Country: US (occurrence: US)
  Receive Date: 20141104
  Receipt Date: 20160216
  Transmission Date: 20160525
  Serious: Yes (Hospitalization, Other)
  Sender: FDA-Public Use
  Company Number: US-GLAXOSMITHKLINE-US2014GSK016461

PATIENT
  Sex: Female

DRUGS (1)
  1. ADVAIR HFA [Suspect]
     Active Substance: FLUTICASONE PROPIONATE\SALMETEROL XINAFOATE
     Indication: CHRONIC OBSTRUCTIVE PULMONARY DISEASE
     Dosage: UNK, U
     Route: 065

REACTIONS (8)
  - Chest discomfort [Unknown]
  - Anxiety [Unknown]
  - Nervousness [Unknown]
  - Emotional distress [Unknown]
  - Chest pain [Unknown]
  - Hospitalisation [Unknown]
  - Intentional underdose [Unknown]
  - Dysphonia [Unknown]
